FAERS Safety Report 8906222 (Version 1)
Quarter: 2012Q4

REPORT INFORMATION
  Report Type: Spontaneous
  Country: US (occurrence: None)
  Receive Date: 20121114
  Receipt Date: 20121114
  Transmission Date: 20130627
  Serious: Yes (Disabling)
  Sender: FDA-Public Use
  Company Number: None

PATIENT
  Age: 47 Year
  Sex: Male
  Weight: 113.4 kg

DRUGS (1)
  1. CORTISONE [Suspect]

REACTIONS (12)
  - Muscle spasms [None]
  - Influenza like illness [None]
  - Oropharyngeal pain [None]
  - Arthralgia [None]
  - Neuropathy peripheral [None]
  - Eye pain [None]
  - Tinnitus [None]
  - Malaise [None]
  - Burning sensation [None]
  - Spinal pain [None]
  - Arthritis [None]
  - Neck injury [None]
